FAERS Safety Report 7545108-7 (Version None)
Quarter: 2011Q2

REPORT INFORMATION
  Report Type: 
  Country: None (occurrence: None)
  Receive Date: 20110606
  Receipt Date: 20110524
  Transmission Date: 20111010
  Serious: Yes (Hospitalization)
  Sender: FDA-Public Use
  Company Number: ATE-11-02

PATIENT
  Age: 48 Year
  Sex: Male

DRUGS (2)
  1. ATENOLOL [Suspect]
     Indication: HYPERTENSION
     Dosage: 50 MG
  2. METHYLPREDNISOLONE [Concomitant]

REACTIONS (12)
  - LETHARGY [None]
  - PNEUMONIA [None]
  - ASTHENIA [None]
  - PARAPLEGIA [None]
  - NERVE COMPRESSION [None]
  - DYSSTASIA [None]
  - HYPOAESTHESIA [None]
  - HYPOTENSION [None]
  - NECK PAIN [None]
  - HYPOTONIA [None]
  - GASTROINTESTINAL HAEMORRHAGE [None]
  - AREFLEXIA [None]
